FAERS Safety Report 8418832-1 (Version None)
Quarter: 2012Q2

REPORT INFORMATION
  Report Type: 
  Country: None (occurrence: None)
  Receive Date: 20120607
  Receipt Date: 20120528
  Transmission Date: 20120825
  Serious: Yes (Other)
  Sender: FDA-Public Use
  Company Number: ES-ROCHE-1075575

PATIENT

DRUGS (2)
  1. XELODA [Suspect]
     Indication: RECTAL CANCER
     Dosage: MONDAY TO FRIDAY
  2. OXALIPLATIN [Suspect]
     Indication: RECTAL CANCER
     Dosage: DAYS 1, 8, AND 15

REACTIONS (2)
  - PROCTITIS [None]
  - DIARRHOEA [None]
